FAERS Safety Report 25973965 (Version 1)
Quarter: 2025Q4

REPORT INFORMATION
  Report Type: Spontaneous
  Country: US (occurrence: US)
  Receive Date: 20251029
  Receipt Date: 20251029
  Transmission Date: 20260117
  Serious: No
  Sender: IPSEN BIOPHARMACEUTICALS, INC.
  Company Number: US-IPSEN Group, Research and Development-2025-26530

PATIENT
  Age: 67 Year
  Sex: Female

DRUGS (3)
  1. IQIRVO [Suspect]
     Active Substance: ELAFIBRANOR
     Indication: Blood test abnormal
     Route: 048
  2. IQIRVO [Suspect]
     Active Substance: ELAFIBRANOR
     Indication: Primary biliary cholangitis
  3. BROMPHENIRAMINE MALEATE [Concomitant]
     Active Substance: BROMPHENIRAMINE MALEATE

REACTIONS (3)
  - Product dose omission issue [Unknown]
  - Bronchitis [Unknown]
  - Sinusitis [Unknown]
